FAERS Safety Report 4454006-7 (Version None)
Quarter: 2004Q3

REPORT INFORMATION
  Report Type: 
  Country: None (occurrence: None)
  Receive Date: 20040826
  Receipt Date: 20040511
  Transmission Date: 20050211
  Serious: No
  Sender: FDA-Public Use
  Company Number: WAES 0403USA00840

PATIENT
  Age: 84 Year
  Sex: Female
  Weight: 68.4932 kg

DRUGS (5)
  1. ZETIA [Suspect]
     Indication: HYPERLIPIDAEMIA
     Dosage: 10 MG/DAILY/PO
     Route: 048
     Dates: start: 20040207, end: 20040213
  2. ISORBID [Concomitant]
  3. PLAVIX [Concomitant]
  4. ASPIRIN [Concomitant]
  5. ATENOLOL [Concomitant]

REACTIONS (4)
  - ARTHRALGIA [None]
  - BURNING SENSATION [None]
  - MYALGIA [None]
  - PAIN [None]
